FAERS Safety Report 7380456-5 (Version None)
Quarter: 2011Q1

REPORT INFORMATION
  Report Type: 
  Country: None (occurrence: None)
  Receive Date: 20110324
  Receipt Date: 20110324
  Transmission Date: 20110831
  Serious: Yes (Other)
  Sender: FDA-Public Use
  Company Number: None

PATIENT
  Sex: Female
  Weight: 56.6996 kg

DRUGS (2)
  1. METRONIDAZOLE [Suspect]
     Indication: CLOSTRIDIAL INFECTION
     Dates: start: 20110318, end: 20110322
  2. METRONIDAZOLE [Suspect]
     Indication: DIVERTICULITIS
     Dosage: 500 MG 3X/DAY PO
     Route: 048
     Dates: start: 20110306, end: 20110311

REACTIONS (7)
  - BONE PAIN [None]
  - URTICARIA [None]
  - SKIN ULCER [None]
  - HEADACHE [None]
  - BODY TEMPERATURE INCREASED [None]
  - CLOSTRIDIUM TEST POSITIVE [None]
  - RASH [None]
